FAERS Safety Report 26177585 (Version 1)
Quarter: 2025Q4

REPORT INFORMATION
  Report Type: Spontaneous
  Country: EU (occurrence: EU)
  Receive Date: 20251219
  Receipt Date: 20251219
  Transmission Date: 20260117
  Serious: Yes (Hospitalization)
  Sender: AUROBINDO
  Company Number: EU-AEMPS-1785451

PATIENT
  Age: 79 Year
  Sex: Male

DRUGS (8)
  1. NAPROXEN [Suspect]
     Active Substance: NAPROXEN
     Indication: Product used for unknown indication
     Dosage: 500.0 MG DU
     Route: 061
     Dates: start: 20240429, end: 20240429
  2. PITAVASTATINA CINFA 1 MG COMPRIMIDOS RECUBIERTOS CON PELICULA EFG, 28 [Concomitant]
     Indication: Hyperlipidaemia
     Dosage: 1.0 MG C/24 H
     Route: 061
  3. DUTASTERIDA/TAMSULOSINA VIATRIS 0,5 MG/0,4 MG CAPSULAS DURAS EFG, 30 c [Concomitant]
     Indication: Dysuria
     Dosage: 1.0 CAPS DE
     Route: 061
  4. TOVEDESO 3,5 MG COMPRIMIDOS DE LIBERACION PROLONGADA, 28 comprimidos [Concomitant]
     Indication: Dysuria
     Dosage: 3.5 MG DECE
     Route: 061
  5. OMEPRAZOL SANDOZ FARMACEUTICA 20 MG CAPSULAS DURAS GASTRORRESISTENTES [Concomitant]
     Indication: Chronic gastritis
     Dosage: 20.0 MG A-DE
     Route: 061
  6. TERBASMIN TURBUHALER 500 microgramos/inhalacion POLVO PARA INHALACION, [Concomitant]
     Indication: Asthma
     Dosage: 500.0 MCG C/24 H
  7. FOSTER 200 MICROGRAMOS /6 MICROGRAMOS/PULSACION SOLUCION PARA INHALACI [Concomitant]
     Indication: Asthma
     Dosage: 2.0 PUFF C/12 H
  8. NASONEX 50 MICROGRAMOS SUSPENSI?N PARA PULVERIZACI?N NASAL , 1 envase [Concomitant]
     Indication: Asthma
     Dosage: 100.0 MCG C/24 H

REACTIONS (2)
  - Bronchospasm [Recovered/Resolved]
  - Self-medication [Recovered/Resolved]

NARRATIVE: CASE EVENT DATE: 20240429
